FAERS Safety Report 6617870-9 (Version None)
Quarter: 2010Q1

REPORT INFORMATION
  Report Type: 
  Country: None (occurrence: None)
  Receive Date: 20100308
  Receipt Date: 20100223
  Transmission Date: 20100710
  Serious: Yes (Hospitalization)
  Sender: FDA-Public Use
  Company Number: US-ELI_LILLY_AND_COMPANY-US201002007089

PATIENT
  Sex: Male

DRUGS (11)
  1. CYMBALTA [Suspect]
     Indication: MAJOR DEPRESSION
     Dosage: 30 MG, DAILY (1/D)
     Dates: start: 20080501
  2. CYMBALTA [Suspect]
     Dosage: 60 MG, 2/D
  3. CYMBALTA [Suspect]
     Dosage: 120 MG, 2/D
  4. CYMBALTA [Suspect]
     Dosage: 60 MG, 2/D
  5. BENAZEPRIL HYDROCHLORIDE [Concomitant]
     Indication: BLOOD PRESSURE
     Dosage: 40 MG, UNK
  6. BACLOFEN [Concomitant]
     Indication: MUSCLE RELAXANT THERAPY
     Dosage: 20 MG, UNK
  7. PLAVIX [Concomitant]
     Indication: ANTICOAGULANT THERAPY
     Dosage: 75 MG, UNK
  8. ASPIRIN [Concomitant]
     Indication: ANTICOAGULANT THERAPY
     Dosage: 325 MG, UNK
  9. HYDROCHLOROTHIAZIDE [Concomitant]
     Indication: BLOOD PRESSURE
     Dosage: 25 MG, UNK
  10. MS CONTIN [Concomitant]
     Indication: PAIN
     Dosage: 15 MG, UNK
  11. NORVASC [Concomitant]
     Indication: BLOOD PRESSURE
     Dosage: 5 MG, UNK

REACTIONS (3)
  - ACCIDENTAL OVERDOSE [None]
  - CEREBROVASCULAR ACCIDENT [None]
  - INCORRECT DOSE ADMINISTERED [None]
